FAERS Safety Report 8803686 (Version 6)
Quarter: 2012Q4

REPORT INFORMATION
  Report Type: 
  Country: US (occurrence: US)
  Receive Date: 20120924
  Receipt Date: 20121228
  Transmission Date: 20130627
  Serious: Yes (Hospitalization, Disabling, Other)
  Sender: FDA-Public Use
  Company Number: US-009507513-1204USA00780

PATIENT

DRUGS (4)
  1. FOSAMAX [Suspect]
     Indication: OSTEOPENIA
     Dosage: 10 mg, UNK
     Route: 048
     Dates: start: 2000, end: 200110
  2. FOSAMAX [Suspect]
     Dosage: 70 mg, qw
     Route: 048
     Dates: start: 200110, end: 200904
  3. ASCORBIC ACID [Concomitant]
     Dosage: 500 mg, UNK
     Dates: start: 2000
  4. CALCIUM (UNSPECIFIED) [Concomitant]
     Dosage: 1200 mg, UNK
     Dates: start: 2000

REACTIONS (10)
  - Open reduction of fracture [Unknown]
  - Fall [Unknown]
  - Femur fracture [Unknown]
  - Tooth extraction [Unknown]
  - Hyperlipidaemia [Unknown]
  - Cough [Recovered/Resolved]
  - Hypertension [Unknown]
  - Skeletal injury [Unknown]
  - Bone disorder [Unknown]
  - Bone disorder [Unknown]
